FAERS Safety Report 7898570-4 (Version None)
Quarter: 2011Q4

REPORT INFORMATION
  Report Type: 
  Country: None (occurrence: None)
  Receive Date: 20111107
  Receipt Date: 20111104
  Transmission Date: 20120403
  Serious: Yes (Hospitalization)
  Sender: FDA-Public Use
  Company Number: US-ABBOTT-11P-163-0869338-00

PATIENT
  Sex: Female
  Weight: 74.91 kg

DRUGS (5)
  1. GLUCOSAMINE [Concomitant]
     Indication: SUPPLEMENTATION THERAPY
  2. HUMIRA [Suspect]
     Indication: RHEUMATOID ARTHRITIS
     Dates: start: 20110601, end: 20111001
  3. HUMIRA [Suspect]
     Indication: RHEUMATOID ARTHRITIS
     Dates: start: 20111025
  4. PREDNISONE [Suspect]
     Indication: RHEUMATOID ARTHRITIS
  5. VITAMIN TAB [Concomitant]
     Indication: VITAMIN SUPPLEMENTATION

REACTIONS (6)
  - DYSPNOEA [None]
  - PAIN [None]
  - RHEUMATOID ARTHRITIS [None]
  - MOBILITY DECREASED [None]
  - PULMONARY CONGESTION [None]
  - JOINT SWELLING [None]
